FAERS Safety Report 7618763-0 (Version None)
Quarter: 2011Q3

REPORT INFORMATION
  Report Type: 
  Country: None (occurrence: None)
  Receive Date: 20110718
  Receipt Date: 20110704
  Transmission Date: 20111222
  Serious: Yes (Hospitalization)
  Sender: FDA-Public Use
  Company Number: DE-BAYER-2010-003122

PATIENT
  Age: 78 Year
  Sex: Male
  Weight: 79 kg

DRUGS (22)
  1. ACETYLSALICYLIC ACID SRT [Concomitant]
     Dosage: 100 MG, QD
  2. KALINOR-BRAUSETABLETTEN [Concomitant]
     Dosage: 1 DF, UNK
  3. PANTOPRAZOLE SODIUM [Concomitant]
     Dosage: 40 MG, QD
  4. MCP [Concomitant]
     Dosage: 2 DROPS
     Route: 048
  5. CIPROFLOXACIN [Concomitant]
     Indication: PROPHYLAXIS
     Dosage: 250 MG, BID
     Dates: start: 20110414, end: 20110420
  6. SPIRONOLACTONE [Concomitant]
     Indication: ASCITES
     Dosage: DAILY DOSE 25 MG
     Dates: start: 20080101
  7. ISOSORBIDE DINITRATE [Concomitant]
     Dosage: UNK
     Dates: start: 20080101
  8. SORAFENIB [Suspect]
     Indication: HEPATIC NEOPLASM MALIGNANT
     Dosage: UNK
     Dates: end: 20100414
  9. DIGITOXIN TAB [Concomitant]
     Indication: CARDIAC FAILURE
     Dosage: DAILY DOSE .07 MG
     Dates: start: 20080101
  10. CALCIUM CARBONATE [Concomitant]
     Dosage: 500 MG, QD
  11. FINASTERIDE [Concomitant]
     Dosage: 5 MG, QD
     Dates: start: 20080101
  12. HYDROCHLOROTHIAZIDE [Concomitant]
     Indication: HYPERTENSION
     Dosage: DAILY DOSE 50 MG
     Dates: start: 20080101
  13. FUROSEMIDE [Concomitant]
     Indication: ASCITES
     Dosage: DAILY DOSE 20 MG
     Dates: start: 20080101
  14. ALLOPURINOL [Concomitant]
     Dosage: DAILY DOSE 100 MG
     Dates: start: 20080101
  15. EZETIMIBE [Concomitant]
     Indication: HYPERLIPIDAEMIA
     Dosage: DAILY DOSE 10 MG
     Dates: start: 20080101
  16. BISOPROLOL [Concomitant]
     Dosage: 2.5 MG, QD
     Dates: start: 20090101
  17. MAGNESIUM [Concomitant]
     Dosage: 40 MG, TID
  18. HYDROCHLOROTHIAZIDE [Concomitant]
     Dosage: 12.5 MG, QD
  19. EZETIMIBE [Concomitant]
     Dosage: 10 MG, QD
  20. SIMVASTATIN [Concomitant]
     Dosage: 20 MG, UNK
  21. NUMALIN [Concomitant]
     Dosage: 3 TIMES A DAY
     Dates: start: 20100501
  22. RAMIPRIL [Concomitant]
     Indication: HYPERTENSION
     Dosage: DAILY DOSE 2.5 MG
     Dates: start: 20090101

REACTIONS (2)
  - FATIGUE [None]
  - HEPATIC ENCEPHALOPATHY [None]
